FAERS Safety Report 5099182-0 (Version None)
Quarter: 2006Q3

REPORT INFORMATION
  Report Type: 
  Country: None (occurrence: None)
  Receive Date: 20060728
  Receipt Date: 20060504
  Transmission Date: 20061208
  Serious: No
  Sender: FDA-Public Use
  Company Number: COT_0551_2006

PATIENT
  Age: 55 Year
  Sex: Male
  Weight: 98.8842 kg

DRUGS (12)
  1. VENTAVIS [Suspect]
     Indication: PULMONARY HYPERTENSION
     Dosage: 2.5 MCG ONCE IH
     Route: 055
     Dates: start: 20050523, end: 20050523
  2. VENTAVIS [Suspect]
     Indication: PULMONARY HYPERTENSION
     Dosage: 5 MCG 6XD IH
     Route: 055
     Dates: start: 20050523
  3. ADVAIR HFA [Concomitant]
  4. CELEBREX [Concomitant]
  5. ASPIRIN [Concomitant]
  6. SPIRIVA [Concomitant]
  7. XOPENEX [Concomitant]
  8. MULTIVITAMIN [Concomitant]
  9. FISH OIL/VITAMIN E/BORAGE OIL [Concomitant]
  10. CHONDRO SU A/HYALUR SOD [Concomitant]
  11. SAM-E [Concomitant]
  12. CRESTOR [Concomitant]

REACTIONS (1)
  - PHARYNGOLARYNGEAL PAIN [None]
